FAERS Safety Report 6063002-8 (Version None)
Quarter: 2009Q1

REPORT INFORMATION
  Report Type: 
  Country: None (occurrence: None)
  Receive Date: 20090202
  Receipt Date: 20090202
  Transmission Date: 20090719
  Serious: No
  Sender: FDA-Public Use
  Company Number: None

PATIENT
  Age: 59 Year
  Sex: Female
  Weight: 52.1637 kg

DRUGS (1)
  1. BONIVA [Suspect]
     Indication: OSTEOPENIA
     Dosage: 1CE/MONTH
     Dates: start: 20070501, end: 20081101

REACTIONS (5)
  - ARTHRALGIA [None]
  - BONE PAIN [None]
  - HEADACHE [None]
  - PAIN IN JAW [None]
  - TOOTHACHE [None]
